FAERS Safety Report 9167862 (Version 1)
Quarter: 2013Q1

REPORT INFORMATION
  Report Type: Spontaneous
  Country: GB (occurrence: None)
  Receive Date: 20130305
  Receipt Date: 20130305
  Transmission Date: 20140127
  Serious: Yes (Other)
  Sender: FDA-Public Use
  Company Number: AUR-APL-2013-01763

PATIENT
  Age: 46 Year
  Sex: Female

DRUGS (3)
  1. NAPROXEN [Suspect]
     Indication: PERIARTHRITIS
     Dosage: 1000 MG (500 MG, 2 IN 1 D), ORAL
     Route: 048
     Dates: start: 20130201, end: 20130202
  2. IBUPROFEN (IBUPROFEN) [Suspect]
     Indication: PERIARTHRITIS
     Dosage: 1200 MG (400 MG, 3 IN 1 D), ORAL
     Route: 048
     Dates: start: 201211, end: 20130130
  3. PARACETAMOL (PARACETAMOL) [Concomitant]

REACTIONS (2)
  - Tremor [None]
  - Discomfort [None]
